FAERS Safety Report 9900921 (Version 2)
Quarter: 2014Q1

REPORT INFORMATION
  Report Type: Report from Study
  Country: US (occurrence: US)
  Receive Date: 20140217
  Receipt Date: 20140217
  Transmission Date: 20141002
  Serious: No
  Sender: FDA-Public Use
  Company Number: US-ABBVIE-12P-163-0937542-00

PATIENT
  Age: 61 Year
  Sex: Female
  Weight: 97.61 kg

DRUGS (10)
  1. SIMCOR 500MG/40MG [Suspect]
     Indication: HIGH DENSITY LIPOPROTEIN DECREASED
     Dosage: 500/40 MG AT BEDTIME
     Route: 048
     Dates: start: 20120514
  2. SIMCOR 500MG/40MG [Suspect]
     Indication: LOW DENSITY LIPOPROTEIN INCREASED
  3. ASA [Concomitant]
     Dosage: QHS
     Route: 048
  4. METFORMIN [Concomitant]
     Indication: PRODUCT USED FOR UNKNOWN INDICATION
  5. LISINOPRIL [Concomitant]
     Indication: PRODUCT USED FOR UNKNOWN INDICATION
     Route: 048
  6. METOPROLOL SUCCINATE W/HYDROCHLOROTHIAZIDE [Concomitant]
     Indication: PRODUCT USED FOR UNKNOWN INDICATION
     Dosage: 50/25 MG
     Route: 048
  7. OMEPRAZOLE [Concomitant]
     Indication: PRODUCT USED FOR UNKNOWN INDICATION
     Route: 048
  8. CYCLOBENZAPRINE [Concomitant]
     Indication: PRODUCT USED FOR UNKNOWN INDICATION
     Route: 048
  9. HYDROXYZINE HCL [Concomitant]
     Indication: PRURITUS
     Dosage: AS NEEDED
     Route: 048
  10. STELARA [Concomitant]
     Indication: PSORIATIC ARTHROPATHY

REACTIONS (3)
  - Blood glucose increased [Unknown]
  - Flushing [Recovered/Resolved]
  - Blood glucose increased [Unknown]
